FAERS Safety Report 7576117-X (Version None)
Quarter: 2011Q2

REPORT INFORMATION
  Report Type: 
  Country: None (occurrence: None)
  Receive Date: 20110623
  Receipt Date: 20110623
  Transmission Date: 20111010
  Serious: Yes (Hospitalization)
  Sender: FDA-Public Use
  Company Number: None

PATIENT

DRUGS (1)
  1. TEMODAR [Suspect]
     Dosage: 160 MG DAILY ORAL
     Route: 048
     Dates: start: 20110215, end: 20110614

REACTIONS (3)
  - NEOPLASM PROGRESSION [None]
  - CEREBROVASCULAR ACCIDENT [None]
  - BRAIN NEOPLASM [None]
